FAERS Safety Report 9269488 (Version 1)
Quarter: 2013Q2

REPORT INFORMATION
  Report Type: Spontaneous
  Country: US (occurrence: US)
  Receive Date: 20130503
  Receipt Date: 20130503
  Transmission Date: 20140414
  Serious: No
  Sender: FDA-Public Use
  Company Number: US-009507513-1305USA000567

PATIENT
  Sex: Female

DRUGS (5)
  1. SAPHRIS [Suspect]
     Indication: BIPOLAR DISORDER
     Dosage: 5 MG, HS
     Route: 060
  2. LAMICTAL [Concomitant]
     Dosage: 25 MG, UNK
  3. LAMICTAL [Concomitant]
     Dosage: 50 MG, QD
  4. PROZAC [Concomitant]
     Dosage: 80 MG, QD
  5. KLONOPIN [Concomitant]
     Dosage: 0.5 MG, QD

REACTIONS (2)
  - Anger [Recovered/Resolved]
  - Somnolence [Recovered/Resolved]
